FAERS Safety Report 23685605 (Version 1)
Quarter: 2024Q1

REPORT INFORMATION
  Report Type: Spontaneous
  Country: RS (occurrence: None)
  Receive Date: 20240329
  Receipt Date: 20240329
  Transmission Date: 20240410
  Serious: Yes (Other)
  Sender: FDA-Public Use
  Company Number: RS-ROCHE-3531006

PATIENT
  Sex: Male

DRUGS (2)
  1. TOCILIZUMAB [Suspect]
     Active Substance: TOCILIZUMAB
     Indication: Rheumatoid arthritis
     Route: 065
     Dates: start: 202311
  2. ROSUVASTATINE/EZETIMIBE [Concomitant]

REACTIONS (2)
  - Platelet count decreased [Unknown]
  - Rheumatoid arthritis [Unknown]
